FAERS Safety Report 12725165 (Version 2)
Quarter: 2020Q3

REPORT INFORMATION
  Report Type: Report from Study
  Country: FI (occurrence: FI)
  Receive Date: 20160908
  Receipt Date: 20161021
  Transmission Date: 20201104
  Serious: Yes (Hospitalization)
  Sender: FDA-Public Use
  Company Number: FI-JNJFOC-20160827109

PATIENT
  Age: 57 Year
  Sex: Female

DRUGS (6)
  1. PLD [Suspect]
     Active Substance: DOXORUBICIN HYDROCHLORIDE
     Route: 042
  2. TRABECTEDIN [Suspect]
     Active Substance: TRABECTEDIN
     Indication: OVARIAN CANCER
     Dosage: INTENDED DOSE AND ADMINISTERED DOSE; 1.6 (UNITS NOT REPORTED); CYCLE OF LAST ADMINISTRATION WAS 5
     Route: 042
     Dates: start: 20160804
  3. PLD [Suspect]
     Active Substance: DOXORUBICIN HYDROCHLORIDE
     Indication: OVARIAN CANCER
     Dosage: INTENDED DOSE AND ADMINISTERED DOSE; 46.00 (UNITS NOT REPORTED); CYCLE OF LAST ADMINISTRATION WAS 5
     Route: 042
     Dates: start: 20160804
  4. G?CSF [Concomitant]
     Active Substance: GRANULOCYTE COLONY-STIMULATING FACTOR NOS
     Indication: PROPHYLAXIS
     Route: 051
     Dates: start: 20160805, end: 20160805
  5. DEXAMETHASONE. [Concomitant]
     Active Substance: DEXAMETHASONE
     Indication: ALLERGY PROPHYLAXIS
     Route: 051
     Dates: start: 20160804, end: 20160804
  6. TRABECTEDIN [Suspect]
     Active Substance: TRABECTEDIN
     Route: 042

REACTIONS (1)
  - Pneumonia [Recovered/Resolved]

NARRATIVE: CASE EVENT DATE: 20160820
